FAERS Safety Report 25755105 (Version 1)
Quarter: 2025Q3

REPORT INFORMATION
  Report Type: Spontaneous
  Country: US (occurrence: US)
  Receive Date: 20250903
  Receipt Date: 20250903
  Transmission Date: 20251020
  Serious: Yes (Hospitalization, Other)
  Sender: BRISTOL-MYERS SQUIBB COMPANY
  Company Number: US-BRISTOL-MYERS SQUIBB COMPANY-2025-121659

PATIENT
  Age: 81 Year
  Sex: Male
  Weight: 79.83 kg

DRUGS (6)
  1. ELIQUIS [Suspect]
     Active Substance: APIXABAN
     Indication: Thrombosis
     Route: 048
     Dates: start: 2024
  2. ELIQUIS [Suspect]
     Active Substance: APIXABAN
     Dosage: 10 MG ONCE A DAY IN MORNING
     Route: 048
     Dates: start: 202508
  3. ELIQUIS [Suspect]
     Active Substance: APIXABAN
     Dosage: 10 MG TWICE DAILY FOR 7 DAYS, THEN TAKE 5 MG TWICE A DAY
     Route: 048
     Dates: start: 202508
  4. ELIQUIS [Suspect]
     Active Substance: APIXABAN
     Route: 048
     Dates: start: 202508
  5. NYSTATIN [Concomitant]
     Active Substance: NYSTATIN
     Indication: Product used for unknown indication
  6. MEDRIN [EMBRAMINE] [Concomitant]
     Indication: Hypotension

REACTIONS (3)
  - Thrombosis [Unknown]
  - Haemorrhage [Unknown]
  - Off label use [Unknown]
